FAERS Safety Report 8294972-5 (Version None)
Quarter: 2012Q2

REPORT INFORMATION
  Report Type: 
  Country: None (occurrence: None)
  Receive Date: 20120418
  Receipt Date: 20120410
  Transmission Date: 20120825
  Serious: No
  Sender: FDA-Public Use
  Company Number: US-BAYER-2012-036161

PATIENT

DRUGS (3)
  1. IBUPROFEN [Concomitant]
     Dosage: 800 MG, UNK
     Route: 048
  2. ALEVE (CAPLET) [Suspect]
     Dosage: 4 U, UNK
     Route: 048
  3. ALEVE (CAPLET) [Suspect]
     Dosage: 2 U, UNK
     Route: 048

REACTIONS (1)
  - NO ADVERSE EVENT [None]
